FAERS Safety Report 5697393-4 (Version None)
Quarter: 2008Q2

REPORT INFORMATION
  Report Type: 
  Country: None (occurrence: None)
  Receive Date: 20080407
  Receipt Date: 20080327
  Transmission Date: 20081010
  Serious: Yes (Other)
  Sender: FDA-Public Use
  Company Number: PHBS2008US03818

PATIENT
  Age: 65 Year
  Sex: Female

DRUGS (5)
  1. PAMIDRONATE DISODIUM [Suspect]
     Indication: MULTIPLE MYELOMA
     Dosage: 90 MG PER MONTH
  2. ZOLEDRONIC ACID [Suspect]
     Indication: MULTIPLE MYELOMA
  3. RADIATION THERAPY [Concomitant]
  4. THALIDOMIDE [Concomitant]
  5. DEXAMETHASONE [Concomitant]

REACTIONS (7)
  - GINGIVAL ERYTHEMA [None]
  - GINGIVAL SWELLING [None]
  - GINGIVAL ULCERATION [None]
  - IMPAIRED HEALING [None]
  - OSTEONECROSIS [None]
  - TOOTH EXTRACTION [None]
  - TOOTH FRACTURE [None]
